FAERS Safety Report 4944262-0 (Version None)
Quarter: 2006Q1

REPORT INFORMATION
  Report Type: 
  Country: None (occurrence: None)
  Receive Date: 20060314
  Receipt Date: 20060314
  Transmission Date: 20060701
  Serious: Yes (Hospitalization, Other)
  Sender: FDA-Public Use
  Company Number: None

PATIENT
  Age: 28 Year
  Sex: Female
  Weight: 79 kg

DRUGS (2)
  1. CYTARABINE [Suspect]
     Indication: ACUTE MYELOID LEUKAEMIA
     Dosage: 1260 MG
     Dates: start: 20060201, end: 20060201
  2. DAUNORUBICIN HCL [Suspect]
     Dosage: 486 MG
     Dates: start: 20060201, end: 20060203

REACTIONS (4)
  - APNOEA [None]
  - PLEURAL EFFUSION [None]
  - PYREXIA [None]
  - VENTRICULAR FIBRILLATION [None]
